FAERS Safety Report 24140217 (Version 1)
Quarter: 2024Q3

REPORT INFORMATION
  Report Type: Spontaneous
  Country: ZA (occurrence: None)
  Receive Date: 20240726
  Receipt Date: 20240726
  Transmission Date: 20241017
  Serious: Yes (Other)
  Sender: ASTRAZENECA
  Company Number: 2024A165885

PATIENT
  Age: 78 Year
  Sex: Female

DRUGS (14)
  1. BUDESONIDE\FORMOTEROL [Suspect]
     Active Substance: BUDESONIDE\FORMOTEROL
     Indication: Asthma
     Dosage: 60 UG, UNKNOWN UNKNOWN
     Route: 055
  2. BUDESONIDE\FORMOTEROL [Suspect]
     Active Substance: BUDESONIDE\FORMOTEROL
     Indication: Chronic obstructive pulmonary disease
     Dosage: 60 UG, UNKNOWN UNKNOWN
     Route: 055
  3. SPIRACTIN [Concomitant]
     Indication: Hypertension
     Dosage: 25.0MG UNKNOWN
     Route: 048
  4. SPIRACTIN [Concomitant]
     Indication: Oedema
     Dosage: 25.0MG UNKNOWN
     Route: 048
  5. SPIRACTIN [Concomitant]
     Indication: Cardiac failure
     Dosage: 25.0MG UNKNOWN
     Route: 048
  6. SPIRACTIN [Concomitant]
     Indication: Hepatic cirrhosis
     Dosage: 25.0MG UNKNOWN
     Route: 048
  7. SPIRACTIN [Concomitant]
     Indication: Renal impairment
     Dosage: 25.0MG UNKNOWN
     Route: 048
  8. LASIX [Concomitant]
     Active Substance: FUROSEMIDE
     Indication: Hypertension
     Dosage: 20.0MG UNKNOWN
     Route: 048
  9. LASIX [Concomitant]
     Active Substance: FUROSEMIDE
     Indication: Renal impairment
     Dosage: 20.0MG UNKNOWN
     Route: 048
  10. LASIX [Concomitant]
     Active Substance: FUROSEMIDE
     Indication: Cirrhosis alcoholic
     Dosage: 20.0MG UNKNOWN
     Route: 048
  11. LASIX [Concomitant]
     Active Substance: FUROSEMIDE
     Indication: Cardiac failure
     Dosage: 20.0MG UNKNOWN
     Route: 048
  12. LASIX [Concomitant]
     Active Substance: FUROSEMIDE
     Indication: Oedema
     Dosage: 20.0MG UNKNOWN
     Route: 048
  13. PLENISH-K SR [Concomitant]
     Indication: Hypokalaemia
     Dosage: 600.0MG UNKNOWN
     Route: 048
  14. ALLOPURINOL [Concomitant]
     Active Substance: ALLOPURINOL
     Indication: Gout
     Dosage: 300.0MG UNKNOWN
     Route: 048

REACTIONS (1)
  - Deafness [Unknown]
